FAERS Safety Report 6375274-0 (Version None)
Quarter: 2009Q3

REPORT INFORMATION
  Report Type: 
  Country: None (occurrence: None)
  Receive Date: 20090924
  Receipt Date: 20090917
  Transmission Date: 20100115
  Serious: Yes (Other)
  Sender: FDA-Public Use
  Company Number: A0804755A

PATIENT
  Age: 56 Year
  Sex: Female

DRUGS (4)
  1. TYKERB [Suspect]
     Indication: BREAST CANCER
     Dosage: 1250MG PER DAY
     Route: 048
     Dates: start: 20090820
  2. XELODA [Concomitant]
  3. ATENOLOL [Concomitant]
  4. LISINOPRIL [Concomitant]

REACTIONS (13)
  - ABDOMINAL PAIN UPPER [None]
  - ACNE [None]
  - BACK PAIN [None]
  - DIARRHOEA [None]
  - DISCOMFORT [None]
  - EPISTAXIS [None]
  - FEELING HOT [None]
  - FLATULENCE [None]
  - POLLAKIURIA [None]
  - RASH [None]
  - SKIN ATROPHY [None]
  - SKIN HAEMORRHAGE [None]
  - SKIN LESION [None]
